FAERS Safety Report 13849147 (Version 1)
Quarter: 2017Q3

REPORT INFORMATION
  Report Type: Spontaneous
  Country: US (occurrence: US)
  Receive Date: 20170809
  Receipt Date: 20170809
  Transmission Date: 20171127
  Serious: No
  Sender: FDA-Public Use
  Company Number: None

PATIENT
  Age: 71 Year
  Sex: Female
  Weight: 52.21 kg

DRUGS (6)
  1. ONE-A-DAY NOS [Concomitant]
     Active Substance: MINERALS\VITAMINS
  2. METROPROLOL [Concomitant]
     Active Substance: METOPROLOL
  3. MACROBID [Suspect]
     Active Substance: NITROFURANTOIN\NITROFURANTOIN MONOHYDRATE
     Indication: KIDNEY INFECTION
     Dosage: ?          QUANTITY:WATT;?.IST ANY RELIEVANT;?
     Dates: start: 20170701, end: 20170705
  4. ASPIRIN. [Suspect]
     Active Substance: ASPIRIN
  5. NORVASC [Concomitant]
     Active Substance: AMLODIPINE BESYLATE
  6. PRAVACHOL [Concomitant]
     Active Substance: PRAVASTATIN SODIUM

REACTIONS (8)
  - Dyspnoea [None]
  - Neck pain [None]
  - Rash generalised [None]
  - Somnolence [None]
  - Blood pressure increased [None]
  - Fibrin D dimer increased [None]
  - Feeling hot [None]
  - Fatigue [None]

NARRATIVE: CASE EVENT DATE: 20170707
